FAERS Safety Report 6825139-2 (Version None)
Quarter: 2010Q3

REPORT INFORMATION
  Report Type: 
  Country: None (occurrence: None)
  Receive Date: 20100708
  Receipt Date: 20061220
  Transmission Date: 20110219
  Serious: No
  Sender: FDA-Public Use
  Company Number: US-PFIZER INC-2007001198

PATIENT
  Sex: Female
  Weight: 58.06 kg

DRUGS (3)
  1. CHANTIX [Suspect]
     Indication: SMOKING CESSATION THERAPY
     Route: 048
     Dates: start: 20061107
  2. FOSAMAX [Concomitant]
  3. CRESTOR [Concomitant]
     Dates: start: 20061001, end: 20061101

REACTIONS (11)
  - ABDOMINAL DISTENSION [None]
  - ABNORMAL DREAMS [None]
  - CONSTIPATION [None]
  - DISTRACTIBILITY [None]
  - FLATULENCE [None]
  - HOT FLUSH [None]
  - INSOMNIA [None]
  - MICTURITION URGENCY [None]
  - POOR QUALITY SLEEP [None]
  - UNEVALUABLE EVENT [None]
  - URINE ODOUR ABNORMAL [None]
